FAERS Safety Report 7129009-4 (Version None)
Quarter: 2010Q4

REPORT INFORMATION
  Report Type: 
  Country: None (occurrence: None)
  Receive Date: 20101130
  Receipt Date: 20101116
  Transmission Date: 20110411
  Serious: Yes (Hospitalization)
  Sender: FDA-Public Use
  Company Number: GXKR2010US13002

PATIENT
  Age: 79 Year
  Sex: Female

DRUGS (18)
  1. SOTALOL HCL [Suspect]
     Indication: HYPERTENSION
     Dosage: 40 MG, BID
  2. SOTALOL HCL [Interacting]
     Indication: ATRIAL FIBRILLATION
  3. OSELTAMIVIR [Interacting]
     Indication: H1N1 INFLUENZA
     Dosage: 75 MG, BID
  4. ACETYLSALICYLIC ACID [Concomitant]
     Dosage: 81 MG/DAY
     Route: 065
  5. WARFARIN [Concomitant]
  6. LISINOPRIL [Concomitant]
  7. FUROSEMIDE [Concomitant]
  8. POTASSIUM CHLORIDE [Concomitant]
  9. CALCIUM [Concomitant]
  10. LECITHIN [Concomitant]
  11. GLUCOSAMINE [Concomitant]
  12. MULTI-VITAMINS [Concomitant]
  13. CEFTRIAXONE [Concomitant]
     Dosage: 1 G, QD
  14. CEFEPIME [Concomitant]
     Dosage: 1 G, Q6H
  15. DOXYCYCLINE [Concomitant]
     Dosage: 100 MG, Q12H
  16. FAMOTIDINE [Concomitant]
     Dosage: 20 MG, BID
  17. VANCOMYCIN [Concomitant]
     Dosage: 1 G, QD
  18. ONDANSETRON [Concomitant]
     Dosage: 4 MG
     Route: 042

REACTIONS (3)
  - CARDIOVERSION [None]
  - DRUG INTERACTION [None]
  - TORSADE DE POINTES [None]
